FAERS Safety Report 9002549 (Version 1)
Quarter: 2013Q1

REPORT INFORMATION
  Report Type: Spontaneous
  Country: CH (occurrence: CH)
  Receive Date: 20130107
  Receipt Date: 20130107
  Transmission Date: 20140127
  Serious: Yes (Hospitalization)
  Sender: FDA-Public Use
  Company Number: CH-NOVOPROD-367856

PATIENT
  Age: 42 Year
  Sex: 0

DRUGS (8)
  1. LEVEMIR [Suspect]
     Indication: TYPE 1 DIABETES MELLITUS
     Dosage: 18 IU, BID
     Route: 058
     Dates: end: 20121115
  2. NOVORAPID [Suspect]
     Indication: TYPE 1 DIABETES MELLITUS
     Dosage: 10 IU, UNK (AS NECESSARY FOR CORRECTION OF MEALS)
     Route: 058
     Dates: end: 20121115
  3. ASPIRIN CARDIO [Concomitant]
     Dosage: 100 MG, QD
     Route: 048
  4. APROVEL [Concomitant]
     Dosage: 300 MG, QD
     Route: 048
  5. CRESTOR [Concomitant]
     Route: 048
  6. PANTOZOL [Concomitant]
     Route: 048
  7. LYRICA [Concomitant]
     Route: 048
  8. TOREM                              /01036501/ [Concomitant]
     Route: 048

REACTIONS (2)
  - Alcohol problem [Recovered/Resolved]
  - Hypoglycaemia [Recovered/Resolved]
